FAERS Safety Report 15315453 (Version 1)
Quarter: 2018Q3

REPORT INFORMATION
  Report Type: Spontaneous
  Country: US (occurrence: US)
  Receive Date: 20180824
  Receipt Date: 20180824
  Transmission Date: 20181010
  Serious: Yes (Hospitalization)
  Sender: FDA-Public Use
  Company Number: US-SA-2018SA234540

PATIENT
  Sex: Female

DRUGS (16)
  1. NITROFURANTOIN. [Concomitant]
     Active Substance: NITROFURANTOIN
  2. OXYCODONE AND ACETAMINOPHEN [Concomitant]
     Active Substance: ACETAMINOPHEN\OXYCODONE HYDROCHLORIDE
  3. ESTRADIOL. [Concomitant]
     Active Substance: ESTRADIOL
  4. ONDANSETRON [Concomitant]
     Active Substance: ONDANSETRON
  5. HYDROCHLOROTHIAZIDE. [Concomitant]
     Active Substance: HYDROCHLOROTHIAZIDE
  6. BUPROPION HYDROCHLORIDE XL [Concomitant]
     Active Substance: BUPROPION HYDROCHLORIDE
  7. MELOXICAM. [Concomitant]
     Active Substance: MELOXICAM
  8. PRALUENT [Suspect]
     Active Substance: ALIROCUMAB
     Indication: HYPERLIPIDAEMIA
     Dosage: 150 MG, QOW
     Route: 058
  9. PANTOPRAZOLE [Concomitant]
     Active Substance: PANTOPRAZOLE
  10. BACLOFEN. [Concomitant]
     Active Substance: BACLOFEN
  11. ENALAPRIL MALEATE. [Concomitant]
     Active Substance: ENALAPRIL MALEATE
  12. PRALUENT [Suspect]
     Active Substance: ALIROCUMAB
     Indication: HYPERLIPIDAEMIA
     Dosage: 150 MG, QOW
     Route: 058
  13. KLOR?CON [Concomitant]
     Active Substance: POTASSIUM CHLORIDE
  14. FLUCONAZOLE. [Concomitant]
     Active Substance: FLUCONAZOLE
  15. RANITIDINE. [Concomitant]
     Active Substance: RANITIDINE
  16. GABAPENTIN. [Concomitant]
     Active Substance: GABAPENTIN

REACTIONS (1)
  - Knee operation [Unknown]
